FAERS Safety Report 14009934 (Version 1)
Quarter: 2017Q3

REPORT INFORMATION
  Report Type: Spontaneous
  Country: US (occurrence: US)
  Receive Date: 20170925
  Receipt Date: 20170925
  Transmission Date: 20171128
  Serious: Yes (Other)
  Sender: FDA-Public Use
  Company Number: US-TEVA-809374USA

PATIENT
  Age: 7 Month
  Sex: Female
  Weight: 9.08 kg

DRUGS (4)
  1. QVAR [Suspect]
     Active Substance: BECLOMETHASONE DIPROPIONATE
     Indication: ASTHMA
  2. QVAR [Suspect]
     Active Substance: BECLOMETHASONE DIPROPIONATE
     Indication: WHEEZING
     Dosage: 80 MICROGRAM DAILY; 2 PUFFS TWICE DAILY
     Route: 065
     Dates: start: 201705, end: 201706
  3. ALBUTEROL. [Concomitant]
     Active Substance: ALBUTEROL
     Indication: PULMONARY CONGESTION
  4. ALBUTEROL. [Concomitant]
     Active Substance: ALBUTEROL
     Indication: WHEEZING
     Route: 065

REACTIONS (3)
  - Pulmonary congestion [Recovered/Resolved]
  - Wheezing [Recovered/Resolved]
  - Product use issue [Unknown]

NARRATIVE: CASE EVENT DATE: 201706
